FAERS Safety Report 8570155-6 (Version None)
Quarter: 2012Q3

REPORT INFORMATION
  Report Type: 
  Country: None (occurrence: None)
  Receive Date: 20120803
  Receipt Date: 20120728
  Transmission Date: 20120928
  Serious: Yes (Other)
  Sender: FDA-Public Use
  Company Number: CN-ABBOTT-12P-035-0962750-00

PATIENT
  Sex: Female

DRUGS (1)
  1. DEPAKENE [Suspect]
     Indication: EPILEPSY
     Dosage: GASTRO-RESIUTANT TABLET
     Route: 048
     Dates: start: 20090222, end: 20090226

REACTIONS (3)
  - BLISTER [None]
  - ERYTHEMA MULTIFORME [None]
  - NECROSIS [None]
